FAERS Safety Report 9523463 (Version 1)
Quarter: 2013Q3

REPORT INFORMATION
  Report Type: Spontaneous
  Country: PH (occurrence: PH)
  Receive Date: 20130913
  Receipt Date: 20130913
  Transmission Date: 20140515
  Serious: Yes (Death, Other)
  Sender: FDA-Public Use
  Company Number: PH-009507513-1309PHL005213

PATIENT
  Age: 60 Year
  Sex: Female

DRUGS (1)
  1. JANUVIA [Suspect]
     Dosage: ONE TABLET, ONCE A DAY
     Route: 048

REACTIONS (4)
  - Blood pressure increased [Fatal]
  - Renal failure [Fatal]
  - Cerebral haemorrhage [Fatal]
  - Coma [Unknown]
